FAERS Safety Report 9256907 (Version 1)
Quarter: 2013Q2

REPORT INFORMATION
  Report Type: Spontaneous
  Country: US (occurrence: None)
  Receive Date: 20130423
  Receipt Date: 20130423
  Transmission Date: 20140414
  Serious: Yes (Life-Threatening, Hospitalization)
  Sender: FDA-Public Use
  Company Number: None

PATIENT
  Age: 17 Year
  Sex: Male
  Weight: 58.06 kg

DRUGS (3)
  1. RITALINLA [Suspect]
     Indication: ATTENTION DEFICIT/HYPERACTIVITY DISORDER
     Route: 048
  2. DIPHENHYDRAMINE [Concomitant]
  3. XYZAL [Concomitant]

REACTIONS (2)
  - Gastrointestinal perforation [None]
  - Peritonitis [None]
